FAERS Safety Report 23241550 (Version 1)
Quarter: 2023Q4

REPORT INFORMATION
  Report Type: Spontaneous
  Country: US (occurrence: US)
  Receive Date: 20231129
  Receipt Date: 20231129
  Transmission Date: 20240110
  Serious: No
  Sender: FDA-Public Use
  Company Number: US-SANOFI-01846859

PATIENT
  Sex: Female

DRUGS (1)
  1. DUPIXENT [Suspect]
     Active Substance: DUPILUMAB
     Indication: Asthma
     Dosage: UNK

REACTIONS (5)
  - Somatic symptom disorder [Unknown]
  - Back pain [Unknown]
  - Muscle spasms [Unknown]
  - Tearfulness [Unknown]
  - Discomfort [Unknown]
